FAERS Safety Report 25788603 (Version 2)
Quarter: 2025Q3

REPORT INFORMATION
  Report Type: Spontaneous
  Country: GB (occurrence: GB)
  Receive Date: 20250910
  Receipt Date: 20250916
  Transmission Date: 20251021
  Serious: Yes (Other)
  Sender: ORGANON
  Company Number: None

PATIENT
  Age: 80 Year
  Sex: Female
  Weight: 114 kg

DRUGS (11)
  1. NASONEX [Suspect]
     Active Substance: MOMETASONE FUROATE
     Indication: Ill-defined disorder
     Dates: start: 20250908
  2. MOMETASONE [Concomitant]
     Active Substance: MOMETASONE
     Indication: Ill-defined disorder
     Dosage: TWO SPRAYS DAILY
     Dates: start: 20250812
  3. FEXOFENADINE [Concomitant]
     Active Substance: FEXOFENADINE HYDROCHLORIDE
     Indication: Ill-defined disorder
     Dosage: 1 DF, QD
     Dates: start: 20250903
  4. ASPIRIN [Concomitant]
     Active Substance: ASPIRIN
     Indication: Ill-defined disorder
     Dosage: 1 DF, QD, TAKE ONE DAILY (AS ADVISED BY NEUROLOGIST - CLI...
     Dates: start: 20221124
  5. ALLOPURINOL [Concomitant]
     Active Substance: ALLOPURINOL
     Indication: Ill-defined disorder
     Dosage: TAKE TWO DAILY (2 DF, QD)
     Dates: start: 20250325
  6. ATORVASTATIN [Concomitant]
     Active Substance: ATORVASTATIN
     Indication: Ill-defined disorder
     Dosage: TAKE ONE DAILY
     Dates: start: 20250325
  7. GLIMEPIRIDE [Concomitant]
     Active Substance: GLIMEPIRIDE
     Indication: Ill-defined disorder
     Dosage: 1 DF, BID, ONE TO BE TAKEN TWICE DAILY (TAKEN SHORTLY BEFO...
     Dates: start: 20250325
  8. LERCANIDIPINE HYDROCHLORIDE [Concomitant]
     Active Substance: LERCANIDIPINE HYDROCHLORIDE
     Indication: Ill-defined disorder
     Dosage: TAKE ONE DAILY (1 DF, QD)
     Dates: start: 20250325
  9. LINAGLIPTIN [Concomitant]
     Active Substance: LINAGLIPTIN
     Indication: Ill-defined disorder
     Dosage: TAKE ONE DAILY (1 DF, QD)
     Dates: start: 20250325
  10. QVAR [Concomitant]
     Active Substance: BECLOMETHASONE DIPROPIONATE
     Indication: Ill-defined disorder
     Dosage: INHALE 1 DOSE TWICE DAILY (1 DF, BID )
     Dates: start: 20250325
  11. RAMIPRIL [Concomitant]
     Active Substance: RAMIPRIL
     Indication: Ill-defined disorder
     Dosage: TAKE ONE DAILY (1 DF, QD)
     Dates: start: 20250325

REACTIONS (1)
  - Chest discomfort [Recovered/Resolved]

NARRATIVE: CASE EVENT DATE: 20250908
